FAERS Safety Report 6270519-X (Version None)
Quarter: 2009Q3

REPORT INFORMATION
  Report Type: 
  Country: None (occurrence: None)
  Receive Date: 20090716
  Receipt Date: 20090529
  Transmission Date: 20100115
  Serious: Yes (Other)
  Sender: FDA-Public Use
  Company Number: JP-JNJFOC-20090703876

PATIENT
  Age: 34 Year
  Sex: Female

DRUGS (1)
  1. ITRACONAZOLE [Suspect]
     Indication: PULMONARY NECROSIS
     Route: 048

REACTIONS (2)
  - C-REACTIVE PROTEIN INCREASED [None]
  - HAEMOPTYSIS [None]
